FAERS Safety Report 9785462 (Version 1)
Quarter: 2013Q4

REPORT INFORMATION
  Report Type: Spontaneous
  Country: IT (occurrence: None)
  Receive Date: 20131224
  Receipt Date: 20131224
  Transmission Date: 20140711
  Serious: Yes (Other)
  Sender: FDA-Public Use
  Company Number: 2077026

PATIENT
  Age: 52 Year
  Sex: Female

DRUGS (2)
  1. PACLITAXEL [Suspect]
     Indication: OVARIAN CANCER
     Dosage: 330 MG MILLIGRAM (S), CYCLICAL, INTRAVENOUS
     Route: 042
     Dates: start: 20131120, end: 20131120
  2. CARBOPLATIN [Concomitant]

REACTIONS (3)
  - Dysphonia [None]
  - Stridor [None]
  - Chest discomfort [None]
